FAERS Safety Report 8027125-6 (Version None)
Quarter: 2011Q4

REPORT INFORMATION
  Report Type: 
  Country: None (occurrence: None)
  Receive Date: 20111130
  Receipt Date: 20110912
  Transmission Date: 20120403
  Serious: Yes (Hospitalization, Other)
  Sender: FDA-Public Use
  Company Number: US201104002771

PATIENT
  Age: 57 Year
  Sex: Male
  Weight: 108.8 kg

DRUGS (13)
  1. ASPIRIN [Concomitant]
  2. BUPROPION HCL [Concomitant]
  3. AMARYL [Concomitant]
  4. GLIMEPIRIDE [Concomitant]
  5. DIOVAN [Concomitant]
  6. OXYCODONE HCL [Concomitant]
  7. ZOLOFT [Concomitant]
  8. BYETTA [Suspect]
     Dosage: SUBCUTANEOUS ; 5 UG, BID, SUBCUTANEOUS
     Route: 058
     Dates: start: 20061004
  9. METFORMIN HCL [Concomitant]
  10. JANUVIA [Concomitant]
  11. VALSARTAN [Concomitant]
  12. ACTOS [Concomitant]
  13. LISINOPRIL /USA/ (LISINOPRIL) [Concomitant]

REACTIONS (1)
  - PANCREATITIS ACUTE [None]
